FAERS Safety Report 8111409-7 (Version None)
Quarter: 2012Q1

REPORT INFORMATION
  Report Type: 
  Country: None (occurrence: None)
  Receive Date: 20120203
  Receipt Date: 20111115
  Transmission Date: 20120608
  Serious: No
  Sender: FDA-Public Use
  Company Number: US-GLAXOSMITHKLINE-A0953418A

PATIENT
  Age: 37 Year
  Sex: Female

DRUGS (2)
  1. LAMICTAL [Suspect]
     Indication: EPILEPSY
     Route: 048
  2. KEPPRA XR [Concomitant]
     Indication: EPILEPSY
     Dosage: 500MG VARIABLE DOSE
     Route: 048
     Dates: start: 20070101

REACTIONS (2)
  - MEMORY IMPAIRMENT [None]
  - FATIGUE [None]
